FAERS Safety Report 19997551 (Version 1)
Quarter: 2021Q4

REPORT INFORMATION
  Report Type: Spontaneous
  Country: RU (occurrence: RU)
  Receive Date: 20211026
  Receipt Date: 20211026
  Transmission Date: 20220303
  Serious: Yes (Other)
  Sender: FDA-Public Use
  Company Number: 2021A783651

PATIENT
  Age: 65 Year
  Sex: Female
  Weight: 56 kg

DRUGS (9)
  1. IMFINZI [Suspect]
     Active Substance: DURVALUMAB
     Indication: Small cell lung cancer
     Dosage: UNKNOWN
     Route: 042
     Dates: end: 202012
  2. IMFINZI [Suspect]
     Active Substance: DURVALUMAB
     Indication: Metastases to lung
     Dosage: UNKNOWN
     Route: 042
     Dates: end: 202012
  3. IMFINZI [Suspect]
     Active Substance: DURVALUMAB
     Indication: Metastases to lymph nodes
     Dosage: UNKNOWN
     Route: 042
     Dates: end: 202012
  4. IMFINZI [Suspect]
     Active Substance: DURVALUMAB
     Indication: Metastases to central nervous system
     Dosage: UNKNOWN
     Route: 042
     Dates: end: 202012
  5. IMFINZI [Suspect]
     Active Substance: DURVALUMAB
     Indication: Small cell lung cancer
     Dosage: UNKNOWN
     Route: 042
     Dates: start: 202101, end: 202105
  6. IMFINZI [Suspect]
     Active Substance: DURVALUMAB
     Indication: Metastases to lung
     Dosage: UNKNOWN
     Route: 042
     Dates: start: 202101, end: 202105
  7. IMFINZI [Suspect]
     Active Substance: DURVALUMAB
     Indication: Metastases to lymph nodes
     Dosage: UNKNOWN
     Route: 042
     Dates: start: 202101, end: 202105
  8. IMFINZI [Suspect]
     Active Substance: DURVALUMAB
     Indication: Metastases to central nervous system
     Dosage: UNKNOWN
     Route: 042
     Dates: start: 202101, end: 202105
  9. DOCETAXEL [Concomitant]
     Active Substance: DOCETAXEL
     Dosage: UNKNOWN
     Route: 065

REACTIONS (2)
  - Malignant neoplasm progression [Unknown]
  - Anaemia [Unknown]

NARRATIVE: CASE EVENT DATE: 20210501
